FAERS Safety Report 23049006 (Version 1)
Quarter: 2023Q4

REPORT INFORMATION
  Report Type: Spontaneous
  Country: IT (occurrence: IT)
  Receive Date: 20231010
  Receipt Date: 20231010
  Transmission Date: 20240109
  Serious: Yes (Hospitalization, Other)
  Sender: FDA-Public Use
  Company Number: IT-AMGEN-ITASP2023177440

PATIENT
  Age: 60 Year
  Sex: Male

DRUGS (14)
  1. FILGRASTIM [Suspect]
     Active Substance: FILGRASTIM
     Indication: Acute myeloid leukaemia recurrent
     Dosage: DAY -1
     Route: 065
     Dates: start: 2015
  2. FILGRASTIM [Suspect]
     Active Substance: FILGRASTIM
     Dosage: DAY -1
     Route: 065
     Dates: start: 201805
  3. CYTARABINE [Suspect]
     Active Substance: CYTARABINE
     Indication: Acute myeloid leukaemia
     Dosage: 2000 MILLIGRAM, QD FOR 5 DAYS
     Route: 065
     Dates: start: 2012
  4. CYTARABINE [Suspect]
     Active Substance: CYTARABINE
     Dosage: 2000 MILLIGRAM, QD FOR 5 DAYS
     Route: 065
     Dates: start: 2015
  5. CYTARABINE [Suspect]
     Active Substance: CYTARABINE
     Dosage: HIGH DOSE
     Route: 065
  6. CYTARABINE [Suspect]
     Active Substance: CYTARABINE
     Dosage: 2000 MILLIGRAM, QD FOR 5 DAYS
     Route: 065
     Dates: start: 201805
  7. FLUDARABINE [Suspect]
     Active Substance: FLUDARABINE PHOSPHATE
     Indication: Acute myeloid leukaemia recurrent
     Dosage: 30 MILLIGRAM, QD FOR 5 DAYS
     Route: 065
     Dates: start: 2015
  8. FLUDARABINE [Suspect]
     Active Substance: FLUDARABINE PHOSPHATE
     Dosage: 40 MILLIGRAM, QD FOR 5 DAYS
     Route: 065
     Dates: start: 201805
  9. IDARUBICIN [Suspect]
     Active Substance: IDARUBICIN
     Indication: Acute myeloid leukaemia
     Dosage: 15 MILLIGRAM, QD FOR 3 DAYS
     Route: 065
     Dates: start: 201805
  10. MITOXANTRONE [Suspect]
     Active Substance: MITOXANTRONE HYDROCHLORIDE
     Indication: Acute myeloid leukaemia recurrent
     Dosage: 7 MILLIGRAM/SQ. METER FOR 3 DAYS
     Route: 065
     Dates: start: 2015
  11. BUSULFAN [Concomitant]
     Active Substance: BUSULFAN
     Indication: Acute myeloid leukaemia recurrent
     Dosage: UNK
  12. VENETOCLAX [Concomitant]
     Active Substance: VENETOCLAX
     Dosage: 50 MILLIGRAM, QD
     Dates: start: 201806
  13. VENETOCLAX [Concomitant]
     Active Substance: VENETOCLAX
     Dosage: 400 MILLIGRAM, QD
     Dates: start: 2018
  14. DECITABINE [Concomitant]
     Active Substance: DECITABINE
     Dosage: 20 MILLIGRAM/SQ. METER, QD (5 DAYS DOSING)
     Dates: start: 201806

REACTIONS (7)
  - Acute myeloid leukaemia recurrent [Recovering/Resolving]
  - Device related infection [Recovered/Resolved]
  - Bone marrow failure [Recovering/Resolving]
  - Pancytopenia [Unknown]
  - Cytopenia [Not Recovered/Not Resolved]
  - Sepsis [Recovered/Resolved]
  - Pyrexia [Unknown]

NARRATIVE: CASE EVENT DATE: 20180101
